FAERS Safety Report 5737412-X (Version None)
Quarter: 2008Q2

REPORT INFORMATION
  Report Type: 
  Country: None (occurrence: None)
  Receive Date: 20080514
  Receipt Date: 20080208
  Transmission Date: 20081010
  Serious: No
  Sender: FDA-Public Use
  Company Number: US-BRISTOL-MYERS SQUIBB COMPANY-14070387

PATIENT
  Age: 45 Year
  Sex: Female

DRUGS (4)
  1. IXEMPRA KIT [Suspect]
     Indication: BREAST CANCER METASTATIC
     Dates: start: 20080206
  2. ALOXI [Concomitant]
     Indication: PREMEDICATION
  3. DECADRON [Concomitant]
     Indication: PREMEDICATION
  4. PEPCID [Concomitant]
     Indication: PREMEDICATION

REACTIONS (1)
  - FLUSHING [None]
